FAERS Safety Report 4692978-6 (Version None)
Quarter: 2005Q2

REPORT INFORMATION
  Report Type: 
  Country: None (occurrence: None)
  Receive Date: 20050223
  Receipt Date: 20050223
  Transmission Date: 20051028
  Serious: No
  Sender: FDA-Public Use
  Company Number: None

PATIENT
  Age: 72 Year
  Sex: Female
  Weight: 108.8633 kg

DRUGS (1)
  1. LOTENSIN HCT [Suspect]
     Indication: HYPERTENSION
     Dosage: 20/25 1 PO QD
     Route: 048
     Dates: start: 20030901, end: 20040801

REACTIONS (3)
  - BLOOD PRESSURE INADEQUATELY CONTROLLED [None]
  - RASH [None]
  - THERAPEUTIC RESPONSE UNEXPECTED WITH DRUG SUBSTITUTION [None]
